FAERS Safety Report 8026362-4 (Version None)
Quarter: 2012Q1

REPORT INFORMATION
  Report Type: 
  Country: None (occurrence: None)
  Receive Date: 20120105
  Receipt Date: 20111229
  Transmission Date: 20120608
  Serious: No
  Sender: FDA-Public Use
  Company Number: US-ABBOTT-12P-163-0888414-00

PATIENT
  Sex: Male

DRUGS (5)
  1. SYNTHROID [Suspect]
     Indication: PRODUCT USED FOR UNKNOWN INDICATION
     Route: 048
     Dates: end: 20110101
  2. SYNTHROID [Suspect]
     Route: 048
     Dates: start: 20110101
  3. SYNTHROID [Suspect]
     Route: 048
  4. UNKNOWN OTHER MEDICATIONS [Concomitant]
     Indication: PRODUCT USED FOR UNKNOWN INDICATION
  5. WARFARIN [Concomitant]
     Indication: PRODUCT USED FOR UNKNOWN INDICATION

REACTIONS (4)
  - INCORRECT DOSE ADMINISTERED [None]
  - DIARRHOEA [None]
  - RASH [None]
  - INTENTIONAL DRUG MISUSE [None]
